FAERS Safety Report 10900202 (Version 2)
Quarter: 2015Q2

REPORT INFORMATION
  Report Type: Spontaneous
  Country: US (occurrence: US)
  Receive Date: 20150310
  Receipt Date: 20150617
  Transmission Date: 20150821
  Serious: Yes (Hospitalization)
  Sender: FDA-Public Use
  Company Number: US-UCBSA-2015006333

PATIENT
  Sex: Female

DRUGS (2)
  1. CIMZIA [Suspect]
     Active Substance: CERTOLIZUMAB PEGOL
     Indication: CROHN^S DISEASE
     Dosage: 400 MG, EV 4 WEEKS (EXPIRY DATE: 31-SEP-2014 AND 31-DEC-2014)
     Route: 058
     Dates: start: 2012
  2. ASACOL [Concomitant]
     Active Substance: MESALAMINE
     Indication: PRODUCT USED FOR UNKNOWN INDICATION
     Dosage: UNK

REACTIONS (8)
  - Dizziness [Recovered/Resolved]
  - Oral herpes [Recovered/Resolved]
  - Knee arthroplasty [Unknown]
  - Crohn^s disease [Unknown]
  - Injection site erythema [Unknown]
  - Skin discolouration [Unknown]
  - Drug ineffective [Unknown]
  - Injection site pruritus [Unknown]

NARRATIVE: CASE EVENT DATE: 2012
